FAERS Safety Report 5357432-7 (Version None)
Quarter: 2007Q2

REPORT INFORMATION
  Report Type: 
  Country: None (occurrence: None)
  Receive Date: 20070530
  Receipt Date: 20061024
  Transmission Date: 20071010
  Serious: Yes (Hospitalization)
  Sender: FDA-Public Use
  Company Number: US_0509122165

PATIENT
  Age: 41 Year
  Sex: Female
  Weight: 95.2 kg

DRUGS (3)
  1. ZYPREXA [Suspect]
     Indication: DEPRESSION
     Dosage: 7.5 MG, ORAL
     Route: 048
     Dates: start: 20020418, end: 20020501
  2. PAROXETINE [Concomitant]
  3. GLIMEPIRIDE [Concomitant]

REACTIONS (5)
  - DIABETES MELLITUS INSULIN-DEPENDENT [None]
  - HYPERGLYCAEMIA [None]
  - KETONURIA [None]
  - METABOLIC DISORDER [None]
  - OBESITY [None]
